FAERS Safety Report 14491689 (Version 3)
Quarter: 2018Q2

REPORT INFORMATION
  Report Type: Spontaneous
  Country: ID (occurrence: ID)
  Receive Date: 20180206
  Receipt Date: 20180613
  Transmission Date: 20180711
  Serious: Yes (Death, Hospitalization)
  Sender: FDA-Public Use
  Company Number: ID-BAYER-2018-017107

PATIENT
  Age: 36 Year
  Sex: Male

DRUGS (1)
  1. NEXAVAR [Suspect]
     Active Substance: SORAFENIB
     Indication: HEPATOCELLULAR CARCINOMA
     Dosage: 400 MG, BID
     Route: 048
     Dates: start: 20180105, end: 20180118

REACTIONS (8)
  - Death [Fatal]
  - Asthenia [None]
  - Coma [None]
  - Mouth haemorrhage [None]
  - Epistaxis [Recovered/Resolved]
  - Asthenia [None]
  - Mouth haemorrhage [Recovered/Resolved]
  - Epistaxis [None]

NARRATIVE: CASE EVENT DATE: 20180114
